FAERS Safety Report 8911838 (Version 1)
Quarter: 2012Q4

REPORT INFORMATION
  Report Type: Report from Study
  Country: US (occurrence: US)
  Receive Date: 20121116
  Receipt Date: 20121116
  Transmission Date: 20130627
  Serious: Yes (Other)
  Sender: FDA-Public Use
  Company Number: US-JNJFOC-20121104347

PATIENT
  Age: 85 None
  Sex: Female
  Weight: 74.84 kg

DRUGS (2)
  1. REMICADE [Suspect]
     Indication: RHEUMATOID ARTHRITIS
     Dosage: with doubled dose (unspecified) and decreased frequency
     Route: 042
     Dates: start: 201204, end: 20120630
  2. REMICADE [Suspect]
     Indication: RHEUMATOID ARTHRITIS
     Route: 042
     Dates: start: 20111229, end: 201202

REACTIONS (8)
  - Fall [Recovered/Resolved]
  - Laceration [Recovered/Resolved]
  - Kidney infection [Recovered/Resolved]
  - Blindness [Recovered/Resolved]
  - Wound infection [Recovered/Resolved]
  - Cataract [Recovered/Resolved]
  - Drug ineffective [Not Recovered/Not Resolved]
  - Malaise [Recovered/Resolved]
